FAERS Safety Report 13246494 (Version 38)
Quarter: 2025Q4

REPORT INFORMATION
  Report Type: Spontaneous
  Country: GB (occurrence: GB)
  Receive Date: 20170217
  Receipt Date: 20251209
  Transmission Date: 20260117
  Serious: Yes (Hospitalization, Other)
  Sender: AUROBINDO
  Company Number: None

PATIENT
  Age: 55 Year
  Sex: Male

DRUGS (52)
  1. CARVEDILOL [Interacting]
     Active Substance: CARVEDILOL
     Indication: Angina pectoris
     Dosage: 25 MILLIGRAM, ONCE A DAY
     Route: 065
     Dates: start: 20110616
  2. CARVEDILOL [Interacting]
     Active Substance: CARVEDILOL
     Dosage: 50 MILLIGRAM, ONCE A DAY(25 MG, QD )
     Route: 065
     Dates: start: 20110616
  3. CARVEDILOL [Interacting]
     Active Substance: CARVEDILOL
     Indication: Angina pectoris
     Dosage: 50 MILLIGRAM, ONCE A DAY (25 MG, BID)
     Route: 065
     Dates: start: 20110616
  4. FUROSEMIDE [Interacting]
     Active Substance: FUROSEMIDE
     Indication: Pleural effusion
     Dosage: 80 MILLIGRAM, ONCE A DAY
     Route: 065
     Dates: start: 20160402
  5. FUROSEMIDE [Interacting]
     Active Substance: FUROSEMIDE
     Indication: Lung disorder
  6. FUROSEMIDE [Interacting]
     Active Substance: FUROSEMIDE
     Indication: Left ventricular dysfunction
  7. FUROSEMIDE [Interacting]
     Active Substance: FUROSEMIDE
     Indication: Pulmonary oedema
  8. FUROSEMIDE [Interacting]
     Active Substance: FUROSEMIDE
     Indication: Pulmonary oedema
     Dosage: 40 MILLIGRAM, ONCE A DAY
     Route: 065
     Dates: start: 20160402
  9. FUROSEMIDE [Interacting]
     Active Substance: FUROSEMIDE
     Indication: Lung disorder
     Dosage: 80 MILLIGRAM, ONCE A DAY
     Route: 065
     Dates: start: 20160402
  10. FUROSEMIDE [Interacting]
     Active Substance: FUROSEMIDE
     Indication: Left ventricular dysfunction
  11. FUROSEMIDE [Interacting]
     Active Substance: FUROSEMIDE
     Indication: Pleural effusion
  12. FUROSEMIDE [Interacting]
     Active Substance: FUROSEMIDE
     Indication: Pleural effusion
     Dosage: 40 MILLIGRAM, ONCE A DAY
     Route: 065
     Dates: start: 20160402
  13. FUROSEMIDE [Interacting]
     Active Substance: FUROSEMIDE
     Indication: Pulmonary oedema
     Dosage: 80 MILLIGRAM, ONCE A DAY
     Route: 065
     Dates: start: 20160402
  14. FUROSEMIDE [Interacting]
     Active Substance: FUROSEMIDE
     Indication: Lung disorder
  15. FUROSEMIDE [Interacting]
     Active Substance: FUROSEMIDE
     Indication: Left ventricular dysfunction
  16. IVABRADINE [Interacting]
     Active Substance: IVABRADINE
     Indication: Angina pectoris
     Dosage: 10 MILLIGRAM, ONCE A DAY(5 MG, BID )
     Route: 065
     Dates: start: 20150211
  17. IVABRADINE [Interacting]
     Active Substance: IVABRADINE
     Dosage: 5 MILLIGRAM, ONCE A DAY
     Route: 065
  18. IVABRADINE [Interacting]
     Active Substance: IVABRADINE
     Dosage: 5 MILLIGRAM
     Route: 065
  19. QUETIAPINE [Interacting]
     Active Substance: QUETIAPINE
     Indication: Depression
     Dosage: UNK
  20. RAMIPRIL [Interacting]
     Active Substance: RAMIPRIL
     Indication: Cardiac failure
     Dosage: 1.25 MILLIGRAM, ONCE A DAY (1.25 MG, QD)
     Dates: start: 20130813, end: 20160629
  21. RAMIPRIL [Interacting]
     Active Substance: RAMIPRIL
     Indication: Cardiac failure
     Dosage: 1.25 MILLIGRAM, ONCE A DAY
     Dates: start: 20130813, end: 20160629
  22. RAMIPRIL [Interacting]
     Active Substance: RAMIPRIL
     Dosage: 1 MILLIGRAM, ONCE A DAY
     Dates: start: 20130813, end: 20160629
  23. RAMIPRIL [Interacting]
     Active Substance: RAMIPRIL
     Indication: Cardiac failure
     Dosage: 1.25 MG, ONCE A DAY
     Dates: start: 20130813, end: 20160629
  24. RAMIPRIL [Interacting]
     Active Substance: RAMIPRIL
     Dosage: 1 MILLIGRAM
     Route: 065
     Dates: start: 20130813, end: 20160629
  25. BOCOCIZUMAB [Suspect]
     Active Substance: BOCOCIZUMAB
     Indication: Cardiovascular disorder
     Dosage: 50 MILLIGRAM, ONCE A DAY (50 MG, QD (25 MG, BID))
     Dates: start: 20110616
  26. BOCOCIZUMAB [Suspect]
     Active Substance: BOCOCIZUMAB
     Indication: Angina pectoris
     Dosage: 150 MILLIGRAM (FREQUENCY- EVERY 2 WEEKS)
     Dates: start: 20150908, end: 20161101
  27. BOCOCIZUMAB [Suspect]
     Active Substance: BOCOCIZUMAB
     Dosage: UNK
  28. CODEINE PHOSPHATE [Suspect]
     Active Substance: CODEINE PHOSPHATE
     Indication: Product used for unknown indication
     Dosage: UNK
     Route: 065
  29. ISOSORBIDE MONONITRATE [Interacting]
     Active Substance: ISOSORBIDE MONONITRATE
     Indication: Angina pectoris
     Dosage: 10 MG, QD (MODIFIED-RELEASE CAPSULE, HARD)
     Dates: start: 20160205
  30. OMEPRAZOLE [Interacting]
     Active Substance: OMEPRAZOLE
     Indication: Dyspepsia
     Dosage: UNK
  31. OMEPRAZOLE [Interacting]
     Active Substance: OMEPRAZOLE
     Indication: Duodenal ulcer
  32. VALSARTAN [Suspect]
     Active Substance: VALSARTAN
     Indication: Product used for unknown indication
     Dosage: UNK
     Route: 065
  33. ASPIRINZ                           /00002701/ [Concomitant]
     Indication: Cardiovascular disorder
     Dosage: UNK
     Route: 065
  34. ATORVASTATIN [Concomitant]
     Active Substance: ATORVASTATIN
     Indication: Cardiovascular disorder
     Dosage: UNK
     Route: 065
  35. ATORVASTATIN [Concomitant]
     Active Substance: ATORVASTATIN
     Dosage: UNK
     Route: 065
  36. Codeine Phosphate1 [Concomitant]
     Indication: Product used for unknown indication
     Dosage: UNK
     Route: 065
  37. ENTRESTOZ [Concomitant]
     Indication: Left ventricular dysfunction
     Dosage: 49/51
     Route: 065
  38. Folic Acid1 [Concomitant]
     Indication: Anaemia
     Dosage: UNK
     Route: 065
  39. Glyceryl Trinitrate6 [Concomitant]
     Indication: Cardiovascular disorder
     Dosage: UNK
     Route: 065
  40. Glyceryl Trinitrate6 [Concomitant]
     Indication: Pain
  41. IVABRADINE [Concomitant]
     Active Substance: IVABRADINE
     Indication: Product used for unknown indication
     Dosage: UNK
     Route: 065
  42. Kapake5 [Concomitant]
     Indication: Pain in extremity
     Dosage: UNK
     Route: 065
  43. BETAMETHASONE DIPROPIONATE\CLOTRIMAZOLE [Concomitant]
     Active Substance: BETAMETHASONE DIPROPIONATE\CLOTRIMAZOLE
     Indication: Psoriasis
     Dosage: UNK
     Route: 065
  44. BETAMETHASONE DIPROPIONATE\CLOTRIMAZOLE [Concomitant]
     Active Substance: BETAMETHASONE DIPROPIONATE\CLOTRIMAZOLE
     Indication: Psoriasis
     Dosage: UNK
     Route: 065
  45. METHOTREXATE [Concomitant]
     Active Substance: METHOTREXATE
     Indication: Psoriasis
     Dosage: UNK
     Route: 065
  46. PARACETAMOL Z [Concomitant]
     Indication: Pain in extremity
     Dosage: UNK
     Route: 065
  47. PARACETAMOL Z [Concomitant]
     Dosage: UNK
     Route: 065
  48. QUETIAPINE FUMARATE1 [Concomitant]
     Indication: Depression
     Dosage: UNK
  49. SACUBITRIL [Concomitant]
     Active Substance: SACUBITRIL
     Indication: Left ventricular dysfunction
     Dosage: UNK,(UNK, 49/51)
     Route: 065
  50. Sertraline Hydrochloride1 [Concomitant]
     Indication: Depression
     Dosage: UNK
     Route: 065
  51. Sertraline Hydrochloride1 [Concomitant]
     Indication: Ventricular dysfunction
     Dosage: UNK
     Route: 065
  52. OMEPRAZOLE [Concomitant]
     Active Substance: OMEPRAZOLE
     Indication: Dyspepsia
     Dosage: UNK
     Route: 065

REACTIONS (13)
  - Oedema peripheral [Not Recovered/Not Resolved]
  - Angina pectoris [Unknown]
  - Anaemia [Unknown]
  - Cardiac failure [Unknown]
  - Fluid retention [Unknown]
  - Pulmonary oedema [Unknown]
  - Presyncope [Unknown]
  - Psoriasis [Unknown]
  - Ventricular dysfunction [Unknown]
  - Hypotension [Recovered/Resolved]
  - Contusion [Recovered/Resolved]
  - Drug interaction [Recovered/Resolved]
  - Off label use [Not Recovered/Not Resolved]

NARRATIVE: CASE EVENT DATE: 20130919
